FAERS Safety Report 5060854-5 (Version None)
Quarter: 2006Q3

REPORT INFORMATION
  Report Type: 
  Country: None (occurrence: None)
  Receive Date: 20060725
  Receipt Date: 20060721
  Transmission Date: 20061208
  Serious: Yes (Hospitalization)
  Sender: FDA-Public Use
  Company Number: JP-JPN-A200602661

PATIENT
  Age: 62 Year
  Sex: Male

DRUGS (11)
  1. VALTREX [Suspect]
     Indication: HERPES ZOSTER
     Dosage: 1000MG PER DAY
     Route: 048
     Dates: start: 20060707, end: 20060709
  2. PHOSBLOCK [Concomitant]
     Route: 048
  3. ISOSORBIDE MONONITRATE [Concomitant]
     Dosage: 20MG TWICE PER DAY
     Route: 048
  4. WARFARIN SODIUM [Concomitant]
     Route: 048
  5. DORNER [Concomitant]
     Dosage: 20MCG THREE TIMES PER DAY
     Route: 048
  6. MUCOSTA [Concomitant]
     Dosage: 100MG THREE TIMES PER DAY
     Route: 048
  7. DIOVAN [Concomitant]
     Dosage: 40MG PER DAY
     Route: 048
  8. GASCON [Concomitant]
     Dosage: 1UNIT THREE TIMES PER DAY
     Route: 048
  9. AMOBAN [Concomitant]
     Dosage: 7.5MG PER DAY
     Route: 048
  10. ASPIRIN [Concomitant]
     Dosage: 100MG PER DAY
     Route: 048
  11. PLETAL [Concomitant]
     Dosage: 100MG TWICE PER DAY
     Route: 048

REACTIONS (1)
  - DELIRIUM [None]
